FAERS Safety Report 5755744-6 (Version None)
Quarter: 2008Q2

REPORT INFORMATION
  Report Type: 
  Country: None (occurrence: None)
  Receive Date: 20080528
  Receipt Date: 20080511
  Transmission Date: 20081010
  Serious: Yes (Life-Threatening)
  Sender: FDA-Public Use
  Company Number: 1-16146908

PATIENT
  Age: 50 Year
  Sex: Female

DRUGS (3)
  1. RIMSO-50 IRRIGATION 50% (W/W) [Suspect]
     Indication: STEM CELL TRANSPLANT
     Dosage: 54 GRAMS, ONCE, INTRAVENOUS
     Route: 042
  2. DIPHENHYDRAMINE HCL [Concomitant]
  3. HYDROCORTISONE [Concomitant]

REACTIONS (7)
  - CEREBRAL ISCHAEMIA [None]
  - COMPLEX PARTIAL SEIZURES [None]
  - LOSS OF CONSCIOUSNESS [None]
  - MYDRIASIS [None]
  - PALLOR [None]
  - RESPIRATORY ARREST [None]
  - TRISMUS [None]
